FAERS Safety Report 8768088 (Version 1)
Quarter: 2012Q4

REPORT INFORMATION
  Report Type: 
  Country: US (occurrence: US)
  Receive Date: 20120905
  Receipt Date: 20120905
  Transmission Date: 20130627
  Serious: Yes (Hospitalization)
  Sender: FDA-Public Use
  Company Number: US-GLAXOSMITHKLINE-A0648036A

PATIENT
  Age: 57 Year
  Sex: Male
  Weight: 140.9 kg

DRUGS (9)
  1. AVANDIA [Suspect]
     Indication: DIABETES MELLITUS
     Dosage: 8MG Unknown
     Route: 048
  2. AVANDARYL [Suspect]
     Route: 065
  3. METOPROLOL [Concomitant]
  4. HYDROCHLOROTHIAZIDE [Concomitant]
  5. METFORMIN [Concomitant]
  6. ASPIRIN [Concomitant]
     Dosage: 81MG Per day
     Route: 048
  7. GLIPIZIDE [Concomitant]
  8. LISINOPRIL [Concomitant]
  9. EZETIMIBE [Concomitant]

REACTIONS (3)
  - Coronary artery bypass [Not Recovered/Not Resolved]
  - Pollakiuria [Unknown]
  - Blood glucose increased [Unknown]
